FAERS Safety Report 6349796-2 (Version None)
Quarter: 2009Q3

REPORT INFORMATION
  Report Type: 
  Country: None (occurrence: None)
  Receive Date: 20090911
  Receipt Date: 20090901
  Transmission Date: 20100115
  Serious: Yes (Hospitalization)
  Sender: FDA-Public Use
  Company Number: PT-SANOFI-SYNTHELABO-D01200905180

PATIENT
  Sex: Male
  Weight: 57 kg

DRUGS (4)
  1. LEUCOVORIN CALCIUM [Suspect]
     Route: 042
     Dates: start: 20090818, end: 20090818
  2. FLUOROURACIL [Suspect]
     Dosage: 400 MG/M?, IV BOLUS D1+D2 FOLLOWED BY 5-FU 2400 MG/M? OVER 46-HOUR CONTINUOUS INFUSION.
     Route: 042
     Dates: start: 20090818, end: 20090818
  3. OXALIPLATIN [Suspect]
     Route: 042
     Dates: start: 20090818, end: 20090818
  4. SR57746 OR PLACEBO [Suspect]
     Route: 048
     Dates: start: 20080804, end: 20090818

REACTIONS (1)
  - MALLORY-WEISS SYNDROME [None]
